FAERS Safety Report 7973927-1 (Version None)
Quarter: 2011Q4

REPORT INFORMATION
  Report Type: 
  Country: None (occurrence: None)
  Receive Date: 20111129
  Receipt Date: 20110808
  Transmission Date: 20120403
  Serious: Yes (Other)
  Sender: FDA-Public Use
  Company Number: PHEH2011US00946

PATIENT
  Age: 55 Year
  Sex: Female

DRUGS (6)
  1. NEXIUM [Concomitant]
  2. PREMPRO [Concomitant]
  3. AFINITOR [Suspect]
     Indication: RENAL CELL CARCINOMA
     Dosage: 10 MG, DAILY, ORAL ; 5 MG, DAILY, ORAL
     Route: 048
  4. VICODIN [Concomitant]
  5. XANAX [Concomitant]
  6. EFFEXOR [Suspect]
     Dosage: 150 MG, BID

REACTIONS (8)
  - NAUSEA [None]
  - PURULENT DISCHARGE [None]
  - ARTHRITIS INFECTIVE [None]
  - VOMITING [None]
  - FEELING HOT [None]
  - ERYTHEMA [None]
  - INSOMNIA [None]
  - STOMATITIS [None]
